FAERS Safety Report 25679951 (Version 1)
Quarter: 2025Q3

REPORT INFORMATION
  Report Type: Spontaneous
  Country: GB (occurrence: GB)
  Receive Date: 20250814
  Receipt Date: 20250814
  Transmission Date: 20251021
  Serious: Yes (Other)
  Sender: TEVA
  Company Number: GB-MHRA-TPP15457365C5738497YC1754759811575

PATIENT
  Age: 42 Year
  Sex: Female
  Weight: 60 kg

DRUGS (8)
  1. DOXYCYCLINE [Suspect]
     Active Substance: DOXYCYCLINE
     Indication: Ill-defined disorder
     Route: 065
     Dates: start: 20250809
  2. BECLOMETHASONE\FORMOTEROL [Concomitant]
     Active Substance: BECLOMETHASONE\FORMOTEROL
     Indication: Ill-defined disorder
     Dates: start: 20230131
  3. LANSOPRAZOLE [Concomitant]
     Active Substance: LANSOPRAZOLE
     Indication: Ill-defined disorder
     Dosage: ON THE DAYS YOU TAKE MEF...
     Dates: start: 20250602, end: 20250630
  4. MEFENAMIC ACID [Concomitant]
     Active Substance: MEFENAMIC ACID
     Indication: Ill-defined disorder
     Dates: start: 20250602, end: 20250609
  5. DOXYCYCLINE [Concomitant]
     Active Substance: DOXYCYCLINE
     Indication: Ill-defined disorder
     Dosage: THEN ONE DAILY
     Dates: start: 20250808
  6. DOXYCYCLINE [Concomitant]
     Active Substance: DOXYCYCLINE
     Indication: Ill-defined disorder
  7. ALBUTEROL [Concomitant]
     Active Substance: ALBUTEROL
     Indication: Ill-defined disorder
     Dates: start: 20240417
  8. FLUOXETINE [Concomitant]
     Active Substance: FLUOXETINE HYDROCHLORIDE
     Indication: Ill-defined disorder
     Dates: start: 20250602, end: 20250630

REACTIONS (1)
  - Chest discomfort [Recovered/Resolved]

NARRATIVE: CASE EVENT DATE: 20250809
